FAERS Safety Report 19398837 (Version 1)
Quarter: 2021Q2

REPORT INFORMATION
  Report Type: Spontaneous
  Country: US (occurrence: US)
  Receive Date: 20210610
  Receipt Date: 20210610
  Transmission Date: 20210717
  Serious: Yes (Hospitalization)
  Sender: FDA-Public Use
  Company Number: None

PATIENT
  Sex: Female

DRUGS (2)
  1. PROMACTA [Suspect]
     Active Substance: ELTROMBOPAG OLAMINE
     Dates: start: 20210421
  2. IMBRUVICA [Concomitant]
     Active Substance: IBRUTINIB
     Dates: start: 20210504

REACTIONS (3)
  - Haemoglobin decreased [None]
  - Leukaemia [None]
  - Platelet count abnormal [None]
